FAERS Safety Report 4960518-X (Version None)
Quarter: 2006Q2

REPORT INFORMATION
  Report Type: 
  Country: None (occurrence: None)
  Receive Date: 20060403
  Receipt Date: 20060306
  Transmission Date: 20061013
  Serious: Yes (Disabling, Other)
  Sender: FDA-Public Use
  Company Number: JP-AVENTIS-200610727JP

PATIENT
  Age: 82 Year
  Sex: Female
  Weight: 37.7 kg

DRUGS (10)
  1. AMARYL [Suspect]
     Indication: DIABETES MELLITUS
     Route: 048
     Dates: end: 20060202
  2. AMARYL [Suspect]
     Route: 048
     Dates: start: 20060202, end: 20060202
  3. CRAVIT [Suspect]
     Indication: CYSTITIS
     Route: 048
     Dates: start: 20060201, end: 20060203
  4. ASPIRIN [Concomitant]
     Indication: CEREBRAL INFARCTION
     Route: 048
  5. LASIX [Concomitant]
     Indication: CARDIAC FAILURE
     Route: 048
  6. WARFARIN [Concomitant]
     Indication: ATRIAL FIBRILLATION
     Route: 048
  7. EC DOPARL [Concomitant]
     Indication: PARKINSONISM
     Route: 048
  8. SYMMETREL [Concomitant]
     Indication: PARKINSONISM
     Route: 048
  9. TAKEPRON [Concomitant]
     Indication: REFLUX OESOPHAGITIS
     Route: 048
  10. PURSENNID [Concomitant]
     Indication: CONSTIPATION
     Route: 048

REACTIONS (3)
  - DEPRESSED LEVEL OF CONSCIOUSNESS [None]
  - DYSLALIA [None]
  - HYPOGLYCAEMIC ENCEPHALOPATHY [None]
